FAERS Safety Report 6165861-7 (Version None)
Quarter: 2009Q2

REPORT INFORMATION
  Report Type: 
  Country: None (occurrence: None)
  Receive Date: 20090423
  Receipt Date: 20090420
  Transmission Date: 20091009
  Serious: Yes (Other)
  Sender: FDA-Public Use
  Company Number: GB-BAUSCH-2009BL001759

PATIENT
  Sex: Male

DRUGS (2)
  1. DEXAMETHASONE [Suspect]
     Indication: MULTIPLE MYELOMA
  2. BORTEZOMIB [Suspect]
     Indication: MULTIPLE MYELOMA

REACTIONS (4)
  - DIARRHOEA [None]
  - HERPES ZOSTER [None]
  - PYREXIA [None]
  - THROMBOCYTOPENIA [None]
